FAERS Safety Report 5134719-4 (Version None)
Quarter: 2006Q4

REPORT INFORMATION
  Report Type: 
  Country: None (occurrence: None)
  Receive Date: 20061025
  Receipt Date: 20041103
  Transmission Date: 20070319
  Serious: Yes (Hospitalization)
  Sender: FDA-Public Use
  Company Number: US-ROCHE-385346

PATIENT
  Age: 53 Year
  Sex: Female
  Weight: 81.6 kg

DRUGS (18)
  1. CAPECITABINE [Suspect]
     Dosage: GIVEN ON DAYS ONE TO 15 OF EACH THREE WEEK CYCLE.
     Route: 048
     Dates: start: 20040920, end: 20041108
  2. CAPECITABINE [Suspect]
     Dosage: GIVEN ON DAYS ONE TO 15 OF EACH THREE WEEK CYCLE.
     Route: 048
     Dates: start: 20041201
  3. OXALIPLATIN [Suspect]
     Dosage: DOSAGE FORM REPORTED AS LIQUID.
     Route: 042
     Dates: start: 20040920, end: 20041101
  4. OXALIPLATIN [Suspect]
     Dosage: DOSAGE FORM REPORTED AS LIQUID.
     Route: 042
     Dates: start: 20041201
  5. MAGNESIUM [Concomitant]
     Dates: start: 20041011
  6. ALOXI [Concomitant]
     Dates: start: 20040920
  7. DECADRON [Concomitant]
     Dates: start: 20040920
  8. ARANESP [Concomitant]
     Dates: start: 20041011
  9. COUMADIN [Concomitant]
     Dates: start: 20040921
  10. CALCIUM GLUCONATE [Concomitant]
     Dates: start: 20040920
  11. COMPAZINE [Concomitant]
     Dates: start: 20040920
  12. ATIVAN [Concomitant]
     Route: 048
     Dates: start: 20040927
  13. MAGNESIUM SULFATE [Concomitant]
     Dates: start: 20040920
  14. M.V.I. [Concomitant]
  15. ZOFRAN [Concomitant]
     Dates: start: 20040909
  16. UNSPECIFIED DRUG [Concomitant]
  17. UNSPECIFIED DRUG [Concomitant]
     Route: 061
     Dates: start: 20041020
  18. EUCERIN [Concomitant]
     Route: 061
     Dates: start: 20040920

REACTIONS (9)
  - BLOOD BILIRUBIN INCREASED [None]
  - BLOOD POTASSIUM DECREASED [None]
  - DUODENITIS [None]
  - ENTEROCOLITIS INFECTIOUS [None]
  - GASTRITIS [None]
  - GASTROINTESTINAL OEDEMA [None]
  - HAEMATOCRIT DECREASED [None]
  - HAEMATURIA [None]
  - HAEMOGLOBIN DECREASED [None]
